FAERS Safety Report 6581030-0 (Version None)
Quarter: 2010Q1

REPORT INFORMATION
  Report Type: 
  Country: None (occurrence: None)
  Receive Date: 20100215
  Receipt Date: 20100202
  Transmission Date: 20100710
  Serious: Yes (Hospitalization, Other)
  Sender: FDA-Public Use
  Company Number: CA-ELI_LILLY_AND_COMPANY-CA200911002861

PATIENT
  Age: 68 Year
  Sex: Female

DRUGS (6)
  1. FORTEO [Suspect]
     Indication: OSTEOPOROSIS
     Dosage: 20 UG, DAILY (1/D)
     Route: 058
     Dates: start: 20090805
  2. CALCIUM                                 /N/A/ [Concomitant]
  3. GLUCOSAMINE [Concomitant]
  4. ASPIRIN [Concomitant]
  5. TYLENOL                                 /SCH/ [Concomitant]
  6. VITAMIN D [Concomitant]

REACTIONS (6)
  - ARTHRALGIA [None]
  - BACK PAIN [None]
  - DEPRESSION [None]
  - HEADACHE [None]
  - LUMBAR VERTEBRAL FRACTURE [None]
  - PAIN IN EXTREMITY [None]
